FAERS Safety Report 13041562 (Version 6)
Quarter: 2017Q1

REPORT INFORMATION
  Report Type: Spontaneous
  Country: CA (occurrence: CA)
  Receive Date: 20161219
  Receipt Date: 20170216
  Transmission Date: 20170428
  Serious: Yes (Other)
  Sender: FDA-Public Use
  Company Number: CA-PFIZER INC-2016439600

PATIENT
  Age: 60 Year
  Sex: Female

DRUGS (5)
  1. METHOTREXATE SODIUM. [Suspect]
     Active Substance: METHOTREXATE SODIUM
     Indication: RHEUMATOID ARTHRITIS
     Dosage: 25 MG, WEEKLY
     Route: 058
     Dates: start: 1987
  2. ARAVA [Concomitant]
     Active Substance: LEFLUNOMIDE
     Indication: RHEUMATOID ARTHRITIS
     Dosage: 10 MG, DAILY
     Route: 048
  3. XELJANZ [Suspect]
     Active Substance: TOFACITINIB CITRATE
     Dosage: 5 MG, 1X/DAY
     Route: 048
     Dates: start: 201611, end: 20161226
  4. XELJANZ [Suspect]
     Active Substance: TOFACITINIB CITRATE
     Indication: RHEUMATOID ARTHRITIS
     Dosage: 5 MG, 2X/DAY
     Route: 048
     Dates: start: 20160501, end: 201611
  5. FOLIC ACID. [Concomitant]
     Active Substance: FOLIC ACID
     Dosage: 5 MG, WEEKLY

REACTIONS (15)
  - Pericarditis [Not Recovered/Not Resolved]
  - Drug ineffective [Unknown]
  - Intentional product misuse [Unknown]
  - Stress [Recovered/Resolved]
  - Insomnia [Recovered/Resolved]
  - Exostosis [Unknown]
  - Depressed mood [Not Recovered/Not Resolved]
  - Blood test abnormal [Unknown]
  - Sciatica [Not Recovered/Not Resolved]
  - Chest pain [Unknown]
  - Blood lead increased [Not Recovered/Not Resolved]
  - Abasia [Not Recovered/Not Resolved]
  - Peripheral swelling [Recovering/Resolving]
  - Joint swelling [Not Recovered/Not Resolved]
  - Anxiety [Recovered/Resolved]

NARRATIVE: CASE EVENT DATE: 2014
